FAERS Safety Report 12668512 (Version 2)
Quarter: 2016Q4

REPORT INFORMATION
  Report Type: Spontaneous
  Country: US (occurrence: US)
  Receive Date: 20160819
  Receipt Date: 20161003
  Transmission Date: 20170207
  Serious: No
  Sender: FDA-Public Use
  Company Number: US-ASTRAZENECA-2016SE77641

PATIENT
  Sex: Male

DRUGS (2)
  1. OTHER MEDICATION [Concomitant]
     Active Substance: UNSPECIFIED INGREDIENT
  2. SYMBICORT [Suspect]
     Active Substance: BUDESONIDE\FORMOTEROL FUMARATE DIHYDRATE
     Dosage: 80MCG/4.5MCG, 2 PUFFS TWICE A DAY
     Route: 055

REACTIONS (6)
  - Device issue [Unknown]
  - Asthma [Unknown]
  - Dyspnoea [Unknown]
  - Intentional product misuse [Unknown]
  - Drug dose omission [Unknown]
  - Chronic obstructive pulmonary disease [Unknown]
